FAERS Safety Report 9831521 (Version 1)
Quarter: 2014Q1

REPORT INFORMATION
  Report Type: Report from Study
  Country: US (occurrence: US)
  Receive Date: 20140121
  Receipt Date: 20140121
  Transmission Date: 20141002
  Serious: Yes (Other)
  Sender: FDA-Public Use
  Company Number: US-ROCHE-1335019

PATIENT
  Sex: Male
  Weight: 37.8 kg

DRUGS (6)
  1. NUTROPIN [Suspect]
     Indication: GROWTH HORMONE DEFICIENCY
     Route: 058
     Dates: start: 201106
  2. ZOLOFT [Concomitant]
     Route: 048
     Dates: start: 201307
  3. MAXITROL 0.1% [Concomitant]
     Dosage: AT BEDTIME
     Route: 061
  4. DOXYCYCLINE MONOHYDRATE [Concomitant]
     Route: 048
  5. TYLENOL/CODEINE [Concomitant]
     Dosage: 1 TABLET AS NEEDED
     Route: 048
  6. MAXITROL EYE DROPS [Concomitant]
     Dosage: 1 DROP OU
     Route: 047

REACTIONS (4)
  - Syncope [Unknown]
  - Insomnia [Unknown]
  - Head injury [Unknown]
  - Fall [Unknown]
